FAERS Safety Report 24114477 (Version 2)
Quarter: 2025Q1

REPORT INFORMATION
  Report Type: Spontaneous
  Country: GB (occurrence: GB)
  Receive Date: 20240720
  Receipt Date: 20250110
  Transmission Date: 20250408
  Serious: Yes (Life-Threatening, Disabling, Other)
  Sender: RANBAXY
  Company Number: GB-MHRA-MED-202405090234004530-TSGYV

PATIENT
  Age: 26 Year
  Sex: Male
  Weight: 108 kg

DRUGS (1)
  1. CITALOPRAM [Suspect]
     Active Substance: CITALOPRAM
     Indication: Product used for unknown indication
     Route: 065
     Dates: start: 20240220

REACTIONS (1)
  - Loss of consciousness [Recovered/Resolved with Sequelae]

NARRATIVE: CASE EVENT DATE: 20240507
